FAERS Safety Report 9097698 (Version 2)
Quarter: 2013Q1

REPORT INFORMATION
  Report Type: Spontaneous
  Country: US (occurrence: US)
  Receive Date: 20130212
  Receipt Date: 20130226
  Transmission Date: 20140127
  Serious: Yes (Hospitalization, Other)
  Sender: FDA-Public Use
  Company Number: US-BRISTOL-MYERS SQUIBB COMPANY-17365339

PATIENT
  Age: 64 Year
  Sex: Male
  Weight: 95 kg

DRUGS (8)
  1. METFORMIN HCL [Suspect]
     Indication: DIABETES MELLITUS
     Dosage: ALSO TAKEN AS CONMED?APR09-20SEP09-2000MG
     Route: 048
     Dates: start: 20090921, end: 20101020
  2. IBUPROFEN [Concomitant]
     Dosage: 1DF=200-600-UNITS NOS
     Route: 048
     Dates: start: 200904
  3. DIPHENHYDRAMINE [Concomitant]
     Dosage: 1DF=25-50-UNITS NOS
     Route: 048
     Dates: start: 2001
  4. CETIRIZINE HCL [Concomitant]
     Route: 048
     Dates: start: 2003
  5. ASPIRIN [Concomitant]
     Route: 048
     Dates: start: 20111012
  6. CLOPIDOGREL BISULFATE [Concomitant]
     Route: 048
     Dates: start: 20101012
  7. METOPROLOL [Concomitant]
     Dates: start: 20101012
  8. LISINOPRIL [Concomitant]
     Route: 048
     Dates: start: 20101012

REACTIONS (3)
  - Acute myocardial infarction [Recovered/Resolved with Sequelae]
  - Atrial fibrillation [Recovered/Resolved]
  - Gastrooesophageal reflux disease [Recovered/Resolved]
